FAERS Safety Report 12975221 (Version 1)
Quarter: 2016Q4

REPORT INFORMATION
  Report Type: Spontaneous
  Country: US (occurrence: US)
  Receive Date: 20161123
  Receipt Date: 20161123
  Transmission Date: 20170207
  Serious: Yes (Disabling, Other)
  Sender: FDA-Public Use
  Company Number: None

PATIENT
  Age: 37 Year
  Sex: Female
  Weight: 63.45 kg

DRUGS (1)
  1. COUMADIN [Suspect]
     Active Substance: WARFARIN SODIUM
     Indication: CEREBRAL VENOUS THROMBOSIS
     Route: 048
     Dates: start: 20150520, end: 20150930

REACTIONS (9)
  - Bundle branch block right [None]
  - Dyspnoea [None]
  - Alopecia [None]
  - Treatment failure [None]
  - Electrocardiogram abnormal [None]
  - Fatigue [None]
  - Chest discomfort [None]
  - Scar [None]
  - Cerebral disorder [None]

NARRATIVE: CASE EVENT DATE: 20150715
